FAERS Safety Report 5076355-4 (Version None)
Quarter: 2006Q3

REPORT INFORMATION
  Report Type: 
  Country: None (occurrence: None)
  Receive Date: 20060807
  Receipt Date: 20060726
  Transmission Date: 20061208
  Serious: Yes (Other)
  Sender: FDA-Public Use
  Company Number: GBWYE466601MAR05

PATIENT
  Age: 82 Year
  Sex: Female

DRUGS (9)
  1. EFFEXOR XR [Suspect]
     Indication: DEPRESSION
     Dosage: SEE IMAGE
     Route: 048
     Dates: start: 20030801, end: 20030801
  2. EFFEXOR XR [Suspect]
     Indication: DEPRESSION
     Dosage: SEE IMAGE
     Route: 048
     Dates: start: 20030801, end: 20030801
  3. EFFEXOR XR [Suspect]
     Indication: DEPRESSION
     Dosage: SEE IMAGE
     Route: 048
     Dates: start: 20030801, end: 20030801
  4. EFFEXOR XR [Suspect]
     Indication: DEPRESSION
     Dosage: SEE IMAGE
     Route: 048
     Dates: start: 20030820, end: 20030820
  5. EFFEXOR XR [Suspect]
     Indication: DEPRESSION
     Dosage: SEE IMAGE
     Route: 048
     Dates: start: 20030901, end: 20050201
  6. EFFEXOR XR [Suspect]
     Indication: DEPRESSION
     Dosage: SEE IMAGE
     Route: 048
     Dates: start: 20050201
  7. ASPIRIN [Concomitant]
  8. ARICEPT [Concomitant]
  9. HYDROXYCARBAMIDE (HYDROXYCARBAMIDE) [Concomitant]

REACTIONS (6)
  - GAIT DISTURBANCE [None]
  - INTENTIONAL OVERDOSE [None]
  - INTENTIONAL SELF-INJURY [None]
  - PARKINSONISM [None]
  - SUICIDAL IDEATION [None]
  - TARDIVE DYSKINESIA [None]
